FAERS Safety Report 9974423 (Version 1)
Quarter: 2014Q1

REPORT INFORMATION
  Report Type: Report from Study
  Country: US (occurrence: US)
  Receive Date: 20140306
  Receipt Date: 20140306
  Transmission Date: 20141002
  Serious: No
  Sender: FDA-Public Use
  Company Number: US-ABBVIE-13P-163-1157125-00

PATIENT
  Sex: Female

DRUGS (3)
  1. HUMIRA [Suspect]
     Indication: PSORIASIS
     Dates: start: 2008, end: 2009
  2. HUMIRA [Suspect]
     Dates: start: 2012, end: 201306
  3. ^VITAMINS^ [Concomitant]
     Indication: PRODUCT USED FOR UNKNOWN INDICATION

REACTIONS (4)
  - Economic problem [Unknown]
  - Psoriasis [Not Recovered/Not Resolved]
  - Gallbladder disorder [Recovering/Resolving]
  - Immune system disorder [Recovering/Resolving]
